FAERS Safety Report 5326342-3 (Version None)
Quarter: 2007Q2

REPORT INFORMATION
  Report Type: 
  Country: None (occurrence: None)
  Receive Date: 20070516
  Receipt Date: 20070514
  Transmission Date: 20071010
  Serious: Yes (Hospitalization)
  Sender: FDA-Public Use
  Company Number: A0651192A

PATIENT
  Sex: Female

DRUGS (2)
  1. COREG [Suspect]
     Indication: TACHYCARDIA
     Dosage: 3.125MG PER DAY
     Route: 048
  2. COREG [Suspect]
     Dosage: 10MG PER DAY
     Route: 048

REACTIONS (2)
  - HYPERTHYROIDISM [None]
  - TACHYCARDIA [None]
